FAERS Safety Report 6771964-6 (Version None)
Quarter: 2010Q2

REPORT INFORMATION
  Report Type: 
  Country: None (occurrence: None)
  Receive Date: 20100616
  Receipt Date: 20100218
  Transmission Date: 20101027
  Serious: No
  Sender: FDA-Public Use
  Company Number: US-ASTRAZENECA-2010SE07120

PATIENT
  Sex: Female
  Weight: 81.6 kg

DRUGS (3)
  1. RHINOCORT [Suspect]
     Indication: CHRONIC SINUSITIS
     Dosage: PRN
     Route: 045
  2. LISINOPRIL [Concomitant]
  3. GLYBURIDE [Concomitant]

REACTIONS (4)
  - ALOPECIA [None]
  - BREATH SOUNDS ABNORMAL [None]
  - DRUG INEFFECTIVE [None]
  - INCORRECT DOSE ADMINISTERED [None]
